FAERS Safety Report 7896060-6 (Version None)
Quarter: 2011Q4

REPORT INFORMATION
  Report Type: 
  Country: None (occurrence: None)
  Receive Date: 20111106
  Receipt Date: 20110906
  Transmission Date: 20120403
  Serious: No
  Sender: FDA-Public Use
  Company Number: US-AMGEN-USASP2011045383

PATIENT
  Age: 51 Year
  Sex: Male

DRUGS (2)
  1. ENBREL [Suspect]
     Indication: ARTHRITIS
     Dosage: 50 MG, QWK
     Dates: start: 20110805
  2. CELEBREX [Concomitant]
     Dosage: 1 MG, BID
     Dates: start: 20110501

REACTIONS (1)
  - PAIN IN EXTREMITY [None]
